FAERS Safety Report 16785608 (Version 1)
Quarter: 2019Q3

REPORT INFORMATION
  Report Type: Spontaneous
  Country: US (occurrence: US)
  Receive Date: 20190717
  Receipt Date: 20190717
  Transmission Date: 20191005
  Serious: Yes (Life-Threatening, Disabling)
  Sender: FDA-Public Use
  Company Number: None

PATIENT
  Age: 33 Year
  Sex: Female
  Weight: 67.95 kg

DRUGS (20)
  1. CARVEDILILOL [Concomitant]
  2. TRAZODONE [Concomitant]
     Active Substance: TRAZODONE HYDROCHLORIDE
  3. FLAXSEED [Concomitant]
     Active Substance: FLAX SEED
  4. AMITRIPTYLINE HCL 50MG [Suspect]
     Active Substance: AMITRIPTYLINE
     Indication: DEPRESSED MOOD
  5. DOXAZPSIN MESYLATE [Concomitant]
  6. NITROGLYCERIN. [Concomitant]
     Active Substance: NITROGLYCERIN
  7. DIAZEPAM. [Concomitant]
     Active Substance: DIAZEPAM
  8. HYDROCODONE ACET [Concomitant]
  9. TAMUSUTION HC [Concomitant]
  10. LININOPRIL [Concomitant]
  11. AMITRIPLINE [Concomitant]
  12. OMEGO 3 OIL [Concomitant]
  13. AMITRIPTYLINE HCL 50MG [Suspect]
     Active Substance: AMITRIPTYLINE
     Indication: MOOD ALTERED
     Dosage: ?          QUANTITY:2 DF DOSAGE FORM;?
     Route: 048
  14. FAMOTIDINE. [Concomitant]
     Active Substance: FAMOTIDINE
  15. AMITRIPTYLINE HCL 50MG [Suspect]
     Active Substance: AMITRIPTYLINE
     Indication: FEAR
  16. BENTROPINE MESYLATE [Concomitant]
  17. AMITRIPTYLINE HCL 50MG [Suspect]
     Active Substance: AMITRIPTYLINE
     Indication: DEPRESSION
  18. DILTIAZEM HCL [Concomitant]
     Active Substance: DILTIAZEM HYDROCHLORIDE
  19. BALOFEN [Concomitant]
  20. NARCAN [Concomitant]
     Active Substance: NALOXONE HYDROCHLORIDE

REACTIONS (9)
  - Haemorrhagic diathesis [None]
  - Tremor [None]
  - Reduced facial expression [None]
  - Abdominal pain [None]
  - Increased tendency to bruise [None]
  - Abdominal pain upper [None]
  - Rash [None]
  - Neuroleptic malignant syndrome [None]
  - Pruritus [None]

NARRATIVE: CASE EVENT DATE: 19950201
